FAERS Safety Report 9158361 (Version 1)
Quarter: 2013Q1

REPORT INFORMATION
  Report Type: Spontaneous
  Country: AU (occurrence: AU)
  Receive Date: 20130312
  Receipt Date: 20130312
  Transmission Date: 20140127
  Serious: Yes (Hospitalization)
  Sender: FDA-Public Use
  Company Number: AU-PFIZER INC-2013080655

PATIENT
  Age: 42 Year
  Sex: Female

DRUGS (4)
  1. VARENICLINE TARTRATE [Suspect]
     Indication: SMOKING CESSATION THERAPY
     Dosage: 0.5 MG FOR 3 DAYS
  2. VARENICLINE TARTRATE [Suspect]
     Dosage: 1 MG/D FOR NEXT 4 DAYS
  3. VARENICLINE TARTRATE [Suspect]
     Dosage: 2 MG/DAY
  4. RISPERIDONE [Concomitant]
     Indication: PROPHYLAXIS
     Dosage: 25MG GIVEN FORTNIGHTLY

REACTIONS (5)
  - Sleep disorder [Recovered/Resolved]
  - Irritability [Recovered/Resolved]
  - Personality disorder [Recovered/Resolved]
  - Paranoia [Recovered/Resolved]
  - Psychotic disorder [Recovered/Resolved]
